FAERS Safety Report 10348325 (Version 10)
Quarter: 2015Q3

REPORT INFORMATION
  Report Type: Spontaneous
  Country: US (occurrence: US)
  Receive Date: 20140729
  Receipt Date: 20150805
  Transmission Date: 20151125
  Serious: Yes (Hospitalization, Other)
  Sender: FDA-Public Use
  Company Number: US-PFIZER INC-2014206656

PATIENT
  Age: 71 Year
  Sex: Female
  Weight: 86.17 kg

DRUGS (24)
  1. LISINOPRIL. [Concomitant]
     Active Substance: LISINOPRIL
     Dosage: 10 MG, 1X/DAY
     Route: 048
     Dates: start: 20120105, end: 20120912
  2. ASPIRIN. [Concomitant]
     Active Substance: ASPIRIN
     Dosage: 81 MG, 1X/DAY
     Route: 048
     Dates: start: 20120105, end: 20120912
  3. OSCAL [Concomitant]
     Active Substance: CALCIUM CARBONATE
     Dosage: 1 Q DAY
     Route: 048
     Dates: start: 20120105
  4. DOXYCYCLINE HYCLATE. [Concomitant]
     Active Substance: DOXYCYCLINE HYCLATE
     Dosage: 100 MG, 2X/DAY ( DAY BEFORE AND AFTER STENT CHANGES)
     Route: 048
     Dates: start: 20140618
  5. SUTENT [Suspect]
     Active Substance: SUNITINIB MALATE
     Indication: BLADDER CANCER
     Dosage: 37.5 MG, 1X/DAY (12.5 MG CAPSULES 3X/DAY), CYCLIC (7 DAYS ON AND 7 DAYS OFF)
     Route: 048
     Dates: start: 20140514
  6. ATENOLOL. [Concomitant]
     Active Substance: ATENOLOL
     Dosage: 25 MG, 1X/DAY
     Route: 048
     Dates: start: 20120105, end: 20140820
  7. TRICOR [Concomitant]
     Active Substance: FENOFIBRATE
     Dosage: 145 MG, 1X/DAY
     Route: 048
     Dates: start: 20120105
  8. DOXYCYCLINE. [Concomitant]
     Active Substance: DOXYCYCLINE
     Dosage: 100 MG, (TAKES WHEN STENTS ARE CHANGED)
  9. ATENOLOL. [Concomitant]
     Active Substance: ATENOLOL
     Dosage: 50 MG, 2X/DAY
     Route: 048
     Dates: start: 20140820
  10. FENOFIBRATE. [Concomitant]
     Active Substance: FENOFIBRATE
     Dosage: 145 MG, 1X/DAY
     Route: 048
     Dates: start: 20140820
  11. MACROBID [Concomitant]
     Active Substance: NITROFURANTOIN\NITROFURANTOIN MONOHYDRATE
     Dosage: 100 MG, 2X/DAY
     Route: 048
     Dates: start: 20140618, end: 20140702
  12. ASPIRIN. [Concomitant]
     Active Substance: ASPIRIN
     Dosage: 81 MG, 1X/DAY, DELAYED RELEASE
     Route: 048
     Dates: start: 20140730
  13. LISINOPRIL. [Concomitant]
     Active Substance: LISINOPRIL
     Dosage: 20 MG, 1X/DAY
     Route: 048
     Dates: start: 20140820
  14. NITROFURANTOIN. [Concomitant]
     Active Substance: NITROFURANTOIN
     Dosage: 100 MG, 2X/DAY
     Route: 048
     Dates: start: 20140820
  15. CLONIDINE. [Concomitant]
     Active Substance: CLONIDINE
     Dosage: 0.2 MG/24H, WEEKLY
     Route: 062
     Dates: start: 20140820
  16. TENORMIN [Concomitant]
     Active Substance: ATENOLOL
     Dosage: UNK
  17. POLY-IRON [Concomitant]
     Dosage: 150 MG, 1X/DAY
     Route: 048
     Dates: start: 20140820
  18. FERROUS SULFATE [Concomitant]
     Active Substance: FERROUS SULFATE\FERROUS SULFATE, DRIED
     Dosage: UNK
  19. LISINOPRIL. [Concomitant]
     Active Substance: LISINOPRIL
     Dosage: 20 MG, 1X/DAY
     Route: 048
     Dates: start: 20140618, end: 20140813
  20. STOOL SOFTENER [Concomitant]
     Active Substance: DOCUSATE CALCIUM
     Dosage: 100 MG, 1X/DAY
     Route: 048
     Dates: start: 20120105
  21. SUTENT [Suspect]
     Active Substance: SUNITINIB MALATE
     Dosage: 37.5 MG, (DAILY FOR 7 DAYS ON/ 7 DAYS OFF)
     Dates: start: 20140614
  22. ATENOLOL. [Concomitant]
     Active Substance: ATENOLOL
     Dosage: 25 MG, UNK
  23. LISINOPRIL. [Concomitant]
     Active Substance: LISINOPRIL
     Dosage: 20 MG, 2X/DAY
  24. BABY ASPIRIN [Concomitant]
     Active Substance: ASPIRIN
     Dosage: UNK

REACTIONS (17)
  - Haemorrhage [Unknown]
  - Fatigue [Unknown]
  - Hypertension [Unknown]
  - Jaw disorder [Unknown]
  - Feeling jittery [Unknown]
  - Headache [Unknown]
  - Memory impairment [Unknown]
  - Urine analysis abnormal [Unknown]
  - Somnolence [Unknown]
  - Feeling cold [Unknown]
  - Hypoacusis [Unknown]
  - Nervousness [Unknown]
  - Urinary tract infection [Unknown]
  - Mood altered [Unknown]
  - Off label use [Unknown]
  - Blood urine present [Recovered/Resolved]
  - Nasopharyngitis [Unknown]
